FAERS Safety Report 24303817 (Version 1)
Quarter: 2024Q3

REPORT INFORMATION
  Report Type: Spontaneous
  Country: CZ (occurrence: CZ)
  Receive Date: 20240910
  Receipt Date: 20240910
  Transmission Date: 20241016
  Serious: Yes (Death, Life-Threatening, Hospitalization, Other)
  Sender: FRESENIUS KABI
  Company Number: None

PATIENT
  Age: 55 Year
  Sex: Female
  Weight: 57 kg

DRUGS (26)
  1. PEMETREXED [Suspect]
     Active Substance: PEMETREXED
     Indication: Lung neoplasm malignant
     Dosage: FORM: CONCENTRATE FOR SOLUTION FOR INFUSION ?ROUTE: INTRAVENOUS
     Dates: start: 20240212, end: 20240805
  2. KEYTRUDA [Suspect]
     Active Substance: PEMBROLIZUMAB
     Indication: Lung neoplasm malignant
     Dosage: 200MG EVERY 21 DAYS (MOVED TO AN INTERVAL OF 35 DAYS)?FORM: CONCENTRATE FOR SOLUTION FOR INFUSION ?R
     Dates: start: 20240212, end: 20240613
  3. CARBOPLATIN [Concomitant]
     Active Substance: CARBOPLATIN
     Indication: Lung neoplasm malignant
     Dosage: INTRAVENOUS
     Dates: start: 20240307, end: 20240418
  4. FURON tbl. 40 mg [Concomitant]
     Indication: Product used for unknown indication
     Dosage: 1/2 - 0 - 0
  5. CISPLATIN [Concomitant]
     Active Substance: CISPLATIN
     Indication: Lung neoplasm malignant
     Dosage: INTRAVENOUS
     Dates: start: 20240212, end: 20240212
  6. XADOS tbl. 20 mg [Concomitant]
     Indication: Product used for unknown indication
     Dosage: 1-0-0
  7. PANADOL NOVUM tbl. 500 mg [Concomitant]
     Indication: Product used for unknown indication
     Dosage: 1 - 1 - 1 - 1?TABLET?ORAL
  8. HELICID cps. 20 mg [Concomitant]
     Indication: Product used for unknown indication
     Dosage: 1 - 0 - 1 BEFORE A MEAL?ORAL
     Dates: start: 20240624, end: 20240719
  9. SUMATRIPTAN [Concomitant]
     Active Substance: SUMATRIPTAN\SUMATRIPTAN SUCCINATE
     Indication: Migraine
  10. PREDNISONE tbl. 20 mg [Concomitant]
     Indication: Product used for unknown indication
     Dosage: 1/2 - 0 - 0
     Dates: end: 20240719
  11. ASENTRA tbl. 50 mg [Concomitant]
     Indication: Product used for unknown indication
     Dosage: 1 - 0 - 0
  12. TELMISARTAN [Concomitant]
     Active Substance: TELMISARTAN
     Indication: Product used for unknown indication
  13. CONTROLOC tbl. 40 mg [Concomitant]
     Indication: Product used for unknown indication
     Dosage: 1-0-0
     Dates: start: 20240730, end: 20240815
  14. FOLIC ACID [Concomitant]
     Active Substance: FOLIC ACID
     Indication: Premedication
     Dosage: 1-0-0
     Dates: start: 20240212
  15. TRITTICO AC tbl. 75 mg [Concomitant]
     Indication: Product used for unknown indication
     Dosage: 0 - 0 - 0 - 2/3 (FOR INSOMNIA)
  16. ASKETON tbl. 50 mg [Concomitant]
     Indication: Product used for unknown indication
     Dosage: 1 - 1 - 1
  17. VITAMIN B12 [Concomitant]
     Active Substance: CYANOCOBALAMIN
     Indication: Premedication
     Dosage: 1ST INJECTION WAS APPLIED BEFORE THE START OF TREATMENT, FURTHER APPLICATIONS EVERY THIRD CYCLE (AT
     Dates: start: 20240212
  18. ESCITALOPRAM tablets 10 mg [Concomitant]
     Indication: Product used for unknown indication
     Dosage: 1 - 0 - 0
  19. GRANEGIS tbl. 1 mg [Concomitant]
     Indication: Nausea
  20. VIGANTOL gtt. 0,5 mg / ml [Concomitant]
     Indication: Product used for unknown indication
     Dosage: 8 - 0 - 0
  21. NEUROL tbl. 0,25 mg [Concomitant]
     Indication: Anxiety
     Dosage: 0 - 0 - 0 - 1 (ONLY FOR ANXIETY AND INSOMNIA!)
  22. NEUROL tbl. 0,25 mg [Concomitant]
     Indication: Insomnia
  23. DEXAMETHASONE [Concomitant]
     Active Substance: DEXAMETHASONE
     Indication: Premedication
     Dosage: 1-0-1, ALWAYS THE DAY BEFORE AND THE DAY AFTER CHEMOTHERAPY
     Dates: start: 202402
  24. BISOPROLOL tbl. 5 mg [Concomitant]
     Indication: Product used for unknown indication
     Dosage: 1-0-0
  25. CALCICHEW D 3 tbl. 1000 mg + 800 UT [Concomitant]
     Dosage: 0 - 0 - 1
  26. DENOSUMAB [Concomitant]
     Active Substance: DENOSUMAB
     Dates: start: 202406

REACTIONS (13)
  - Febrile neutropenia [Fatal]
  - Colitis [Fatal]
  - Acute kidney injury [Fatal]
  - Diarrhoea [Fatal]
  - Acute kidney injury [Recovered/Resolved]
  - Pancytopenia [Recovered/Resolved]
  - Dehydration [Recovered/Resolved]
  - Pancytopenia [Unknown]
  - Enteritis [Unknown]
  - Metabolic acidosis [Unknown]
  - Hypocalcaemia [Unknown]
  - Hyperparathyroidism secondary [Unknown]
  - Liver disorder [Unknown]

NARRATIVE: CASE EVENT DATE: 20240601
